FAERS Safety Report 8363520-3 (Version None)
Quarter: 2012Q2

REPORT INFORMATION
  Report Type: 
  Country: None (occurrence: None)
  Receive Date: 20120516
  Receipt Date: 20120511
  Transmission Date: 20120825
  Serious: Yes (Death, Other)
  Sender: FDA-Public Use
  Company Number: JP-GENZYME-THYM-1003248

PATIENT
  Age: 71 Year
  Sex: Female
  Weight: 55 kg

DRUGS (1)
  1. THYMOGLOBULIN [Suspect]
     Indication: APLASTIC ANAEMIA
     Dosage: 2.75 MG/KG, QD
     Route: 042
     Dates: start: 20120423, end: 20120427

REACTIONS (4)
  - HAEMATEMESIS [None]
  - HAEMOPTYSIS [None]
  - INFECTION [None]
  - NAUSEA [None]
